FAERS Safety Report 4751216-6 (Version None)
Quarter: 2005Q3

REPORT INFORMATION
  Report Type: 
  Country: None (occurrence: None)
  Receive Date: 20050823
  Receipt Date: 20050823
  Transmission Date: 20060218
  Serious: Yes (Other)
  Sender: FDA-Public Use
  Company Number: None

PATIENT
  Age: 43 Year
  Sex: Male
  Weight: 90.7194 kg

DRUGS (1)
  1. PROVIGIL [Suspect]
     Dosage: 200 MG PO Q AM
     Route: 048
     Dates: start: 20050607, end: 20050718

REACTIONS (3)
  - ANORGASMIA [None]
  - EJACULATION DELAYED [None]
  - LIBIDO DECREASED [None]
